FAERS Safety Report 6922374-X (Version None)
Quarter: 2010Q3

REPORT INFORMATION
  Report Type: 
  Country: None (occurrence: None)
  Receive Date: 20100813
  Receipt Date: 20100802
  Transmission Date: 20110219
  Serious: Yes (Life-Threatening)
  Sender: FDA-Public Use
  Company Number: US-JNJFOC-20100801057

PATIENT
  Age: 45 Year
  Sex: Female
  Weight: 50 kg

DRUGS (16)
  1. ETRAVIRINE [Suspect]
     Indication: HIV INFECTION
     Route: 048
  2. DANURAVIR [Suspect]
     Indication: HIV INFECTION
     Route: 048
  3. FOLIC ACID [Concomitant]
     Route: 065
  4. BENZTROPINE MESYLATE [Concomitant]
     Route: 065
  5. EMTRICITABINE [Concomitant]
     Route: 065
  6. TENOFOVIR DISOPROXIL FUMARATE [Concomitant]
     Route: 065
  7. DOCUSATE [Concomitant]
     Route: 065
  8. RALTEGRAVIR [Concomitant]
     Route: 065
  9. VALPROIC ACID [Concomitant]
     Route: 065
  10. PSYLLIUM [Concomitant]
     Route: 065
  11. DELAPRIL [Concomitant]
     Route: 065
  12. FLUCONAZOLE [Concomitant]
     Route: 065
  13. ZOSYN [Concomitant]
     Route: 065
  14. VANCOMYCIN [Concomitant]
     Route: 065
  15. AZITHROMYCIN [Concomitant]
  16. MORPHINE [Concomitant]
     Route: 065

REACTIONS (1)
  - SKIN EXFOLIATION [None]
